FAERS Safety Report 6760235-X (Version None)
Quarter: 2010Q2

REPORT INFORMATION
  Report Type: 
  Country: None (occurrence: None)
  Receive Date: 20100608
  Receipt Date: 20010301
  Transmission Date: 20101027
  Serious: No
  Sender: FDA-Public Use
  Company Number: 2001SUS0162

PATIENT
  Sex: Female

DRUGS (1)
  1. SUSTIVA [Suspect]
     Indication: HIV INFECTION
     Dosage: UNK UNK
     Route: 048
     Dates: start: 20000701

REACTIONS (1)
  - PREGNANCY [None]
